FAERS Safety Report 7850894-2 (Version None)
Quarter: 2011Q4

REPORT INFORMATION
  Report Type: 
  Country: None (occurrence: None)
  Receive Date: 20111024
  Receipt Date: 20111010
  Transmission Date: 20120403
  Serious: Yes (Hospitalization)
  Sender: FDA-Public Use
  Company Number: 2011CP000166

PATIENT
  Age: 17 Year
  Sex: Female

DRUGS (5)
  1. PRIMPERAN TAB [Concomitant]
  2. ARTESUNATE [Suspect]
     Indication: MALARIA
     Dosage: 120 MG; 2/1 DAY; IV
     Route: 042
     Dates: start: 20110907, end: 20110908
  3. RIAMET [Suspect]
     Dosage: 1 DOSAGE FORM; 4/1 DAY; PO
     Route: 048
     Dates: start: 20110906, end: 20110912
  4. CEFTRIAXONE [Suspect]
     Dosage: 2 GRAM; ; IV
     Route: 042
     Dates: start: 20110906, end: 20110906
  5. ACETAMINOPHEN [Suspect]
     Dosage: IV
     Route: 042
     Dates: start: 20110906, end: 20110915

REACTIONS (7)
  - CONDITION AGGRAVATED [None]
  - HAEMOLYTIC ANAEMIA [None]
  - BLOOD CALCIUM DECREASED [None]
  - THROMBOCYTOPENIA [None]
  - HAEMODYNAMIC INSTABILITY [None]
  - PLATELET COUNT INCREASED [None]
  - BLOOD PHOSPHORUS DECREASED [None]
